FAERS Safety Report 8321752-4 (Version None)
Quarter: 2012Q2

REPORT INFORMATION
  Report Type: 
  Country: None (occurrence: None)
  Receive Date: 20120430
  Receipt Date: 20091113
  Transmission Date: 20120825
  Serious: No
  Sender: FDA-Public Use
  Company Number: US-TEVA-2009021094

PATIENT
  Sex: Female
  Weight: 56.75 kg

DRUGS (5)
  1. MS CONTIN [Concomitant]
     Indication: PAIN
     Dates: start: 20030101
  2. CLONAZEPAM [Concomitant]
     Indication: ANXIETY
     Dates: start: 19920101
  3. NUVIGIL [Suspect]
     Indication: NARCOLEPSY
     Route: 048
     Dates: start: 20090601, end: 20090701
  4. WELLBUTRIN [Concomitant]
     Indication: DEPRESSION
  5. OXYCODONE HCL [Concomitant]
     Indication: PAIN
     Dates: start: 20030101

REACTIONS (1)
  - DRUG INEFFECTIVE [None]
